FAERS Safety Report 15112584 (Version 3)
Quarter: 2018Q3

REPORT INFORMATION
  Report Type: Report from Study
  Country: US (occurrence: US)
  Receive Date: 20180705
  Receipt Date: 20180921
  Transmission Date: 20181010
  Serious: Yes (Death, Life-Threatening, Hospitalization)
  Sender: FDA-Public Use
  Company Number: US-ACTELION-A-US2018-167947

PATIENT
  Age: 29 Year
  Sex: Female

DRUGS (4)
  1. ADEMPAS [Concomitant]
     Active Substance: RIOCIGUAT
     Dosage: 2.5 MG, TID
     Dates: start: 20170615
  2. PREDNISONE. [Concomitant]
     Active Substance: PREDNISONE
  3. OPSUMIT [Suspect]
     Active Substance: MACITENTAN
     Indication: PULMONARY ARTERIAL HYPERTENSION
     Dosage: 10 MG, QD
     Route: 048
     Dates: start: 20170224, end: 20180828
  4. CELLCEPT [Concomitant]
     Active Substance: MYCOPHENOLATE MOFETIL\MYCOPHENOLATE MOFETIL HYDROCHLORIDE

REACTIONS (28)
  - Hospitalisation [Unknown]
  - Viral test positive [Unknown]
  - Asthenia [Unknown]
  - Chest pain [Unknown]
  - Blood albumin decreased [Unknown]
  - Fluid overload [Unknown]
  - Cor pulmonale [Unknown]
  - Dyspnoea [Recovered/Resolved with Sequelae]
  - Cough [Unknown]
  - Nausea [Unknown]
  - Palpitations [Unknown]
  - Oxygen therapy [Unknown]
  - Pyrexia [Unknown]
  - Epistaxis [Unknown]
  - Oxygen saturation decreased [Unknown]
  - Pulmonary arterial hypertension [Fatal]
  - Pneumonia [Recovered/Resolved with Sequelae]
  - Alanine aminotransferase increased [Unknown]
  - Right ventricular enlargement [Unknown]
  - Myalgia [Unknown]
  - Urinary tract infection [Recovering/Resolving]
  - Respiratory failure [Not Recovered/Not Resolved]
  - Idiopathic pulmonary fibrosis [Recovered/Resolved with Sequelae]
  - Right ventricular dysfunction [Unknown]
  - Plasmapheresis [Unknown]
  - Acute respiratory failure [Fatal]
  - Dizziness [Unknown]
  - Aspartate aminotransferase increased [Unknown]

NARRATIVE: CASE EVENT DATE: 20170912
